FAERS Safety Report 9590102 (Version 1)
Quarter: 2013Q4

REPORT INFORMATION
  Report Type: Spontaneous
  Country: US (occurrence: US)
  Receive Date: 20131003
  Receipt Date: 20131003
  Transmission Date: 20140711
  Serious: No
  Sender: FDA-Public Use
  Company Number: US-AMGEN-USASP2012074489

PATIENT
  Age: 60 Year
  Sex: Female
  Weight: 86.17 kg

DRUGS (10)
  1. ENBREL [Suspect]
     Indication: RHEUMATOID ARTHRITIS
     Dosage: 50 MG, QWK
     Route: 058
  2. CYMBALTA [Concomitant]
     Dosage: 30 MG, UNK
     Route: 048
  3. VICODIN [Concomitant]
     Dosage: 5-500 MG,
     Route: 048
  4. SYNTHROID [Concomitant]
     Dosage: 137 MUG, UNK
     Route: 048
  5. TRAMADOL HCL [Concomitant]
     Dosage: 50 MG, UNK
     Route: 048
  6. LISINOPRIL [Concomitant]
     Dosage: 40 MG, UNK
     Route: 048
  7. WELLBUTRIN [Concomitant]
     Dosage: 200 MG, UNK
     Route: 048
  8. METHOTREXATE [Concomitant]
     Dosage: 50 MG, UNK
     Route: 058
  9. VITAMIN D                          /00107901/ [Concomitant]
     Dosage: 2000 UNIT, UNK
     Route: 048
  10. FOLIC ACID [Concomitant]
     Dosage: UNK
     Route: 048

REACTIONS (1)
  - Rash [Unknown]
